FAERS Safety Report 8538889-7 (Version None)
Quarter: 2012Q3

REPORT INFORMATION
  Report Type: 
  Country: None (occurrence: None)
  Receive Date: 20120726
  Receipt Date: 20120719
  Transmission Date: 20120928
  Serious: Yes (Hospitalization)
  Sender: FDA-Public Use
  Company Number: RS-PFIZER INC-2012176117

PATIENT
  Age: 54 Year
  Sex: Male

DRUGS (4)
  1. BROMAZEPAM [Concomitant]
     Indication: STRESS AT WORK
     Dosage: 21 MG
  2. CHLORIMIPRAMINE [Concomitant]
     Indication: STRESS AT WORK
     Dosage: 125 MG
  3. PREGABALIN [Suspect]
     Indication: GENERALISED ANXIETY DISORDER
     Dosage: 450 MG DAILY
  4. PREGABALIN [Suspect]
     Indication: STRESS AT WORK
     Dosage: 4.2 G

REACTIONS (2)
  - TOXICITY TO VARIOUS AGENTS [None]
  - INTENTIONAL OVERDOSE [None]
